FAERS Safety Report 10269618 (Version 3)
Quarter: 2014Q3

REPORT INFORMATION
  Report Type: Spontaneous
  Country: DE (occurrence: DE)
  Receive Date: 20140701
  Receipt Date: 20140707
  Transmission Date: 20150326
  Serious: Yes (Congenital Anomaly)
  Sender: FDA-Public Use
  Company Number: DE-RANBAXY-2014RR-82847

PATIENT
  Sex: Female

DRUGS (3)
  1. RANITIDINE [Suspect]
     Active Substance: RANITIDINE\RANITIDINE HYDROCHLORIDE
     Indication: DYSPEPSIA
     Dosage: IF REQUIRED, DOSAGE UNKNOWN, DURING GESTATIONAL WEEKS 5-8
     Route: 064
  2. VITAMIN B COMPLEX/ FOLIC ACID [Concomitant]
     Indication: PROPHYLAXIS OF NEURAL TUBE DEFECT
     Dosage: 0.4 MG, QD, DURING GESTATIONAL WEEKS 5-36.3
     Route: 064
  3. PANTOPRAZOLE [Suspect]
     Active Substance: PANTOPRAZOLE SODIUM
     Indication: DYSPEPSIA
     Dosage: 20 MG DAILY, IF REQUIRED, ABOUT 3 TO 4 TIMES A WEEK, DURING GESTATIONAL WEEKS 10-36.3
     Route: 064
     Dates: end: 20140115

REACTIONS (1)
  - Haemangioma congenital [Unknown]
